FAERS Safety Report 9355691 (Version 1)
Quarter: 2013Q2

REPORT INFORMATION
  Report Type: Spontaneous
  Country: AU (occurrence: AU)
  Receive Date: 20130619
  Receipt Date: 20130619
  Transmission Date: 20140414
  Serious: Yes (Other)
  Sender: FDA-Public Use
  Company Number: AU-JNJFOC-20130609863

PATIENT
  Age: 51 Year
  Sex: Male

DRUGS (2)
  1. NICORETTE PATCH STEP 1 15MG [Suspect]
     Route: 062
  2. NICORETTE PATCH STEP 1 15MG [Suspect]
     Indication: SMOKING CESSATION THERAPY
     Route: 062

REACTIONS (2)
  - Suicidal ideation [Unknown]
  - Hostility [Unknown]
